FAERS Safety Report 12419661 (Version 1)
Quarter: 2016Q2

REPORT INFORMATION
  Report Type: Spontaneous
  Country: US (occurrence: US)
  Receive Date: 20160531
  Receipt Date: 20160531
  Transmission Date: 20160815
  Serious: Yes (Hospitalization)
  Sender: FDA-Public Use
  Company Number: US-ASTRAZENECA-2016SE55970

PATIENT
  Sex: Male
  Weight: 91.2 kg

DRUGS (8)
  1. SYMBICORT [Suspect]
     Active Substance: BUDESONIDE\FORMOTEROL FUMARATE DIHYDRATE
     Indication: PNEUMONIA
     Dosage: 160/4.5, TWO PUFFS, TWO TIMES A DAY
     Route: 055
     Dates: start: 20160310
  2. METOPROLOL ER [Suspect]
     Active Substance: METOPROLOL SUCCINATE
     Indication: CARDIAC DISORDER
     Route: 048
  3. SODIUM BICARB [Concomitant]
     Dosage: 650 MG TWO TIMES A DAY
  4. PANTOTRAZOLE ER [Concomitant]
     Indication: GASTRIC DISORDER
  5. BICALUTAMIDE. [Suspect]
     Active Substance: BICALUTAMIDE
     Indication: PROSTATE CANCER
     Route: 048
  6. FINASTERIDE. [Concomitant]
     Active Substance: FINASTERIDE
  7. NEBULIZER [Concomitant]
     Active Substance: DEVICE
     Dosage: EVERY SIX HOURS AS NEEDED
  8. PANTOPRAZOLE ER [Concomitant]
     Dosage: BEFORE BREAKFAST

REACTIONS (7)
  - Pneumonia [Unknown]
  - Product use issue [Unknown]
  - Device malfunction [Unknown]
  - Prostate cancer [Unknown]
  - Drug dose omission [Unknown]
  - Off label use [Unknown]
  - Metastases to bone marrow [Unknown]
